FAERS Safety Report 6322067-6 (Version None)
Quarter: 2009Q3

REPORT INFORMATION
  Report Type: 
  Country: None (occurrence: None)
  Receive Date: 20090821
  Receipt Date: 20090821
  Transmission Date: 20100115
  Serious: Yes (Hospitalization, Other)
  Sender: FDA-Public Use
  Company Number: None

PATIENT
  Age: 32 Year
  Sex: Female
  Weight: 66.6788 kg

DRUGS (1)
  1. SEPTRA DS [Suspect]
     Indication: URINARY TRACT INFECTION
     Dosage: 1 EA. 2X PER DAY PO
     Route: 048
     Dates: start: 20090817, end: 20090819

REACTIONS (4)
  - BACK PAIN [None]
  - CHOLECYSTITIS [None]
  - HEADACHE [None]
  - LOSS OF PROPRIOCEPTION [None]
